FAERS Safety Report 9940877 (Version 1)
Quarter: 2014Q1

REPORT INFORMATION
  Report Type: Spontaneous
  Country: BR (occurrence: BR)
  Receive Date: 20140303
  Receipt Date: 20140303
  Transmission Date: 20141002
  Serious: Yes (Other)
  Sender: FDA-Public Use
  Company Number: BR-PFIZER INC-2014058295

PATIENT
  Age: 70 Year
  Sex: Female
  Weight: 76 kg

DRUGS (4)
  1. ATENOLOL [Suspect]
     Indication: ARTERIAL OCCLUSIVE DISEASE
     Dosage: 25 MG, DAILY
     Route: 048
     Dates: start: 2012
  2. CRESTOR [Suspect]
     Indication: BLOOD CHOLESTEROL INCREASED
     Dosage: 5 MG, 1X/DAY (HS)
     Route: 048
     Dates: end: 2013
  3. CLORANA [Suspect]
     Indication: ARTERIAL OCCLUSIVE DISEASE
     Dosage: DAILY
     Route: 048
     Dates: start: 2012
  4. CHONDROITIN/GLUCOSAMINE [Concomitant]
     Indication: SPINAL DISORDER
     Dosage: UNK
     Route: 048

REACTIONS (3)
  - Coronary artery occlusion [Recovered/Resolved]
  - Blood cholesterol increased [Unknown]
  - Therapy cessation [Unknown]
